FAERS Safety Report 14343072 (Version 1)
Quarter: 2017Q4

REPORT INFORMATION
  Report Type: Spontaneous
  Country: US (occurrence: US)
  Receive Date: 20171230
  Receipt Date: 20171230
  Transmission Date: 20180321
  Serious: Yes (Other)
  Sender: FDA-Public Use
  Company Number: None

PATIENT
  Age: 12 Year
  Sex: Male
  Weight: 50.4 kg

DRUGS (12)
  1. MIRALAX [Concomitant]
     Active Substance: POLYETHYLENE GLYCOL 3350
  2. LISINOPRIL. [Concomitant]
     Active Substance: LISINOPRIL
  3. CALCIUM [Concomitant]
     Active Substance: CALCIUM
  4. ZOLOFT [Concomitant]
     Active Substance: SERTRALINE HYDROCHLORIDE
  5. EPELERONE [Concomitant]
  6. VITAMIN D [Concomitant]
     Active Substance: CHOLECALCIFEROL
  7. EXONDYS51 [Concomitant]
  8. DAYTRANA [Concomitant]
     Active Substance: METHYLPHENIDATE
  9. GUANFACIN [Concomitant]
     Active Substance: GUANFACINE
  10. EMFLAZA [Suspect]
     Active Substance: DEFLAZACORT
     Indication: DUCHENNE MUSCULAR DYSTROPHY
  11. MIRALAX [Concomitant]
     Active Substance: POLYETHYLENE GLYCOL 3350
  12. MELATONIN [Concomitant]
     Active Substance: MELATONIN

REACTIONS (3)
  - Asthenia [None]
  - Weight increased [None]
  - Abnormal behaviour [None]

NARRATIVE: CASE EVENT DATE: 20170501
